FAERS Safety Report 9228493 (Version 2)
Quarter: 2013Q2

REPORT INFORMATION
  Report Type: Spontaneous
  Country: BR (occurrence: BR)
  Receive Date: 20130412
  Receipt Date: 20130522
  Transmission Date: 20140414
  Serious: Yes (Other)
  Sender: FDA-Public Use
  Company Number: BR-ROCHE-1211733

PATIENT
  Sex: 0
  Weight: 60 kg

DRUGS (3)
  1. RIVOTRIL [Suspect]
     Indication: PRODUCT USED FOR UNKNOWN INDICATION
     Route: 065
  2. ADVIL [Concomitant]
     Indication: HEADACHE
  3. DORFLEX [Concomitant]
     Indication: HEADACHE

REACTIONS (3)
  - Gastrointestinal neoplasm [Recovered/Resolved]
  - Drug ineffective [Unknown]
  - Headache [Not Recovered/Not Resolved]
